FAERS Safety Report 9709401 (Version 1)
Quarter: 2013Q4

REPORT INFORMATION
  Report Type: Report from Study
  Country: ES (occurrence: ES)
  Receive Date: 20131126
  Receipt Date: 20131126
  Transmission Date: 20140711
  Serious: Yes (Other)
  Sender: FDA-Public Use
  Company Number: ES-ROCHE-1307251

PATIENT
  Age: 32 Year
  Sex: Female

DRUGS (4)
  1. MYCOPHENOLATE MOFETIL [Suspect]
     Indication: IMMUNOSUPPRESSION
     Route: 065
     Dates: start: 200404, end: 201102
  2. EVEROLIMUS [Concomitant]
     Dosage: 6-8 NG/ML LEVELS
     Route: 065
  3. TACROLIMUS [Concomitant]
     Dosage: 7-10 NG/ML LEVELS
     Route: 065
  4. PREDNISONE [Concomitant]
     Route: 065

REACTIONS (2)
  - Cervical dysplasia [Recovered/Resolved]
  - Papilloma viral infection [Recovered/Resolved]
